FAERS Safety Report 24779397 (Version 4)
Quarter: 2025Q3

REPORT INFORMATION
  Report Type: Spontaneous
  Country: JP (occurrence: JP)
  Receive Date: 20241226
  Receipt Date: 20250809
  Transmission Date: 20251020
  Serious: Yes (Death, Other)
  Sender: ALEXION PHARMACEUTICALS
  Company Number: JP-ASTRAZENECA-240145445_063010_P_1

PATIENT
  Age: 70 Year
  Sex: Male

DRUGS (6)
  1. DAPAGLIFLOZIN [Suspect]
     Active Substance: DAPAGLIFLOZIN
     Indication: Type 2 diabetes mellitus
  2. DAPAGLIFLOZIN [Suspect]
     Active Substance: DAPAGLIFLOZIN
  3. DAPAGLIFLOZIN [Suspect]
     Active Substance: DAPAGLIFLOZIN
  4. ADALAT [Concomitant]
     Active Substance: NIFEDIPINE
     Indication: Product used for unknown indication
     Route: 065
  5. ADALAT [Concomitant]
     Active Substance: NIFEDIPINE
     Route: 065
  6. ADALAT [Concomitant]
     Active Substance: NIFEDIPINE
     Route: 065

REACTIONS (14)
  - Hepatocellular carcinoma [Unknown]
  - Hypoglycaemia [Fatal]
  - Renal impairment [Unknown]
  - Dehydration [Unknown]
  - Glycosylated haemoglobin increased [Unknown]
  - Decreased appetite [Unknown]
  - Fluid intake reduced [Unknown]
  - Hepatic function abnormal [Unknown]
  - Abdominal pain upper [Unknown]
  - Malaise [Unknown]
  - Sinusitis [Unknown]
  - Red blood cell count increased [Unknown]
  - Blood glucose increased [Unknown]
  - Tachycardia [Unknown]
